FAERS Safety Report 24561177 (Version 1)
Quarter: 2024Q4

REPORT INFORMATION
  Report Type: Spontaneous
  Country: US (occurrence: US)
  Receive Date: 20241029
  Receipt Date: 20241029
  Transmission Date: 20250115
  Serious: No
  Sender: ROCHE
  Company Number: US-ROCHE-10000115106

PATIENT
  Sex: Female

DRUGS (2)
  1. RITUXAN [Suspect]
     Active Substance: RITUXIMAB
     Indication: Systemic lupus erythematosus
     Dosage: STRENGTH 10 MG/ML
     Route: 042
     Dates: start: 202409
  2. SAPHNELO [Concomitant]
     Active Substance: ANIFROLUMAB-FNIA

REACTIONS (7)
  - Off label use [Unknown]
  - Nausea [Unknown]
  - Neuropathy peripheral [Unknown]
  - Stomatitis [Unknown]
  - Ulcer [Unknown]
  - Fatigue [Unknown]
  - Pain [Unknown]
